FAERS Safety Report 13542686 (Version 1)
Quarter: 2017Q2

REPORT INFORMATION
  Report Type: Spontaneous
  Country: US (occurrence: US)
  Receive Date: 20170512
  Receipt Date: 20170512
  Transmission Date: 20170830
  Serious: No
  Sender: FDA-Public Use
  Company Number: US-ROCHE-717403

PATIENT
  Sex: Male
  Weight: 53.5 kg

DRUGS (5)
  1. CARBOPLATIN. [Concomitant]
     Active Substance: CARBOPLATIN
     Indication: NON-SMALL CELL LUNG CANCER
     Dosage: FREQUENCY: WEEKLY, 20 WEEKS
     Route: 042
     Dates: start: 20091005, end: 20100308
  2. AVASTIN [Suspect]
     Active Substance: BEVACIZUMAB
     Indication: NON-SMALL CELL LUNG CANCER
     Dosage: DOSE LEVEL: 15 MG/KG
     Route: 042
     Dates: start: 20091214, end: 20100517
  3. GEMZAR [Concomitant]
     Active Substance: GEMCITABINE HYDROCHLORIDE
     Indication: NON-SMALL CELL LUNG CANCER
     Dosage: FREQUENCY: 4 CYCLES, Q14DAYS
     Route: 042
     Dates: start: 20100405, end: 20100712
  4. NAVELBINE [Concomitant]
     Active Substance: VINORELBINE TARTRATE
     Indication: NON-SMALL CELL LUNG CANCER
     Dosage: FREQUENCY: 4 CYCLES, Q14DAYS
     Route: 042
     Dates: start: 20100405, end: 20100712
  5. TAXOL [Concomitant]
     Active Substance: PACLITAXEL
     Indication: NON-SMALL CELL LUNG CANCER
     Dosage: FREQUENCY: WEEKLY, 20 WEEKS
     Route: 042
     Dates: start: 20091005, end: 20100308

REACTIONS (2)
  - Drug ineffective [Unknown]
  - No adverse event [Unknown]
